FAERS Safety Report 16588919 (Version 1)
Quarter: 2019Q3

REPORT INFORMATION
  Report Type: Report from Study
  Country: None (occurrence: RO)
  Receive Date: 20190718
  Receipt Date: 20190718
  Transmission Date: 20191004
  Serious: Yes (Death)
  Sender: FDA-Public Use
  Company Number: RO-ABBVIE-19K-135-2855771-00

PATIENT
  Age: 84 Year
  Sex: Female

DRUGS (1)
  1. DUODOPA [Suspect]
     Active Substance: CARBIDOPA\LEVODOPA
     Indication: PARKINSON^S DISEASE
     Dosage: DM=3.40?DC=4.30?ED=2.00?NRED=2;?DMN=0.00?DCN=0.00?EDN=0.00?NREDN=0
     Route: 050
     Dates: start: 20140331, end: 20190701

REACTIONS (1)
  - Cardio-respiratory arrest [Fatal]

NARRATIVE: CASE EVENT DATE: 20190701
